FAERS Safety Report 14120471 (Version 2)
Quarter: 2017Q4

REPORT INFORMATION
  Report Type: Spontaneous
  Country: AR (occurrence: AR)
  Receive Date: 20171024
  Receipt Date: 20171025
  Transmission Date: 20180321
  Serious: Yes (Death, Other)
  Sender: FDA-Public Use
  Company Number: AR-009507513-1710ARG011651

PATIENT
  Age: 20 Year
  Sex: Female

DRUGS (1)
  1. IMPLANON [Suspect]
     Active Substance: ETONOGESTREL
     Dosage: 1 DF, UNK
     Route: 059
     Dates: start: 20170925

REACTIONS (3)
  - Cardio-respiratory arrest [Fatal]
  - Seizure [Unknown]
  - Migraine [Unknown]

NARRATIVE: CASE EVENT DATE: 2017
